FAERS Safety Report 15631633 (Version 1)
Quarter: 2018Q4

REPORT INFORMATION
  Report Type: Spontaneous
  Country: US (occurrence: US)
  Receive Date: 20181119
  Receipt Date: 20181119
  Transmission Date: 20190205
  Serious: Yes (Hospitalization, Other)
  Sender: FDA-Public Use
  Company Number: US-ROCHE-2205932

PATIENT
  Sex: Female

DRUGS (2)
  1. XOLAIR [Suspect]
     Active Substance: OMALIZUMAB
     Indication: PRODUCT USED FOR UNKNOWN INDICATION
     Route: 065
     Dates: start: 20181007
  2. XOLAIR [Suspect]
     Active Substance: OMALIZUMAB
     Dosage: Q4
     Route: 065

REACTIONS (5)
  - Headache [Unknown]
  - Fatigue [Unknown]
  - Injection site reaction [Unknown]
  - Myalgia [Recovered/Resolved]
  - Vein disorder [Unknown]
